FAERS Safety Report 7465529-0 (Version None)
Quarter: 2011Q2

REPORT INFORMATION
  Report Type: 
  Country: None (occurrence: None)
  Receive Date: 20110509
  Receipt Date: 20110427
  Transmission Date: 20111010
  Serious: Yes (Other)
  Sender: FDA-Public Use
  Company Number: US-ROCHE-749964

PATIENT
  Sex: Male
  Weight: 62.6 kg

DRUGS (3)
  1. ACCUTANE [Suspect]
     Route: 065
     Dates: end: 20000101
  2. ACCUTANE [Suspect]
     Route: 065
     Dates: start: 19990617, end: 19990717
  3. ACCUTANE [Suspect]
     Indication: ACNE
     Route: 065
     Dates: start: 19990101, end: 19990401

REACTIONS (12)
  - COLITIS ULCERATIVE [None]
  - INTERVERTEBRAL DISC DEGENERATION [None]
  - GASTROOESOPHAGEAL REFLUX DISEASE [None]
  - SUICIDAL IDEATION [None]
  - GASTROINTESTINAL INJURY [None]
  - HAEMORRHOIDS [None]
  - HEADACHE [None]
  - GASTRIC DISORDER [None]
  - CHRONIC FATIGUE SYNDROME [None]
  - DEPRESSION [None]
  - IRRITABLE BOWEL SYNDROME [None]
  - INFLAMMATORY BOWEL DISEASE [None]
